FAERS Safety Report 23358620 (Version 1)
Quarter: 2024Q1

REPORT INFORMATION
  Report Type: Spontaneous
  Country: US (occurrence: None)
  Receive Date: 20240101
  Receipt Date: 20240101
  Transmission Date: 20240410
  Serious: Yes (Life-Threatening, Hospitalization, Disabling, Other)
  Sender: FDA-Public Use
  Company Number: None

PATIENT
  Age: 74 Year
  Sex: Female
  Weight: 43.09 kg

DRUGS (1)
  1. MORPHINE [Suspect]
     Active Substance: MORPHINE

REACTIONS (7)
  - Anxiety [None]
  - Feeling abnormal [None]
  - Brain death [None]
  - Loss of consciousness [None]
  - Emotional disorder [None]
  - Device failure [None]
  - Cardiac arrest [None]

NARRATIVE: CASE EVENT DATE: 20231221
